FAERS Safety Report 17894896 (Version 1)
Quarter: 2020Q2

REPORT INFORMATION
  Report Type: Spontaneous
  Country: US (occurrence: US)
  Receive Date: 20200615
  Receipt Date: 20200615
  Transmission Date: 20200714
  Serious: No
  Sender: FDA-Public Use
  Company Number: US-SANOFI-AVENTIS-2010SA057774

PATIENT

DRUGS (3)
  1. PLAVIX [Suspect]
     Active Substance: CLOPIDOGREL BISULFATE
     Dosage: 75 MG,QD
     Route: 048
     Dates: start: 2006
  2. COUMADIN [Suspect]
     Active Substance: WARFARIN SODIUM
     Dosage: UNK UNK,UNK
     Route: 065
     Dates: start: 2009
  3. ACETYLSALICYLIC ACID [Suspect]
     Active Substance: ASPIRIN
     Dosage: UNK UNK,UNK
     Route: 065
     Dates: start: 2009

REACTIONS (1)
  - Memory impairment [Unknown]
